FAERS Safety Report 8709699 (Version 6)
Quarter: 2016Q1

REPORT INFORMATION
  Report Type: Spontaneous
  Country: US (occurrence: US)
  Receive Date: 20120806
  Receipt Date: 20160301
  Transmission Date: 20160526
  Serious: No
  Sender: FDA-Public Use
  Company Number: US-GLAXOSMITHKLINE-A0948537A

PATIENT
  Sex: Female

DRUGS (2)
  1. ADVAIR HFA [Suspect]
     Active Substance: FLUTICASONE PROPIONATE\SALMETEROL XINAFOATE
     Indication: ASTHMA
     Route: 055
     Dates: start: 20110816
  2. VENTOLIN HFA [Suspect]
     Active Substance: ALBUTEROL SULFATE
     Indication: ASTHMA
     Route: 055
     Dates: start: 20110816

REACTIONS (11)
  - Malaise [Unknown]
  - Drug administration error [Unknown]
  - Injury [Unknown]
  - Bronchitis [Unknown]
  - Stomatitis [Recovered/Resolved]
  - Weight increased [Unknown]
  - Intentional overdose [Unknown]
  - Fall [Unknown]
  - Nasopharyngitis [Unknown]
  - Asthma [Unknown]
  - Intentional product misuse [Unknown]
